FAERS Safety Report 17652333 (Version 2)
Quarter: 2020Q2

REPORT INFORMATION
  Report Type: Spontaneous
  Country: EG (occurrence: EG)
  Receive Date: 20200409
  Receipt Date: 20200416
  Transmission Date: 20200713
  Serious: Yes (Life-Threatening)
  Sender: FDA-Public Use
  Company Number: EG-NOVOPROD-721976

PATIENT
  Age: 77 Year
  Sex: Female
  Weight: 70 kg

DRUGS (4)
  1. PLENDIL [Concomitant]
     Active Substance: FELODIPINE
     Indication: HYPERTENSION
     Dosage: 2 DF, QD
     Route: 048
  2. CONVENTIN [Concomitant]
     Indication: NEUROPATHY PERIPHERAL
     Dosage: 2 DF, QD (2 TAB./DAY)
     Route: 048
  3. MIXTARD 30 HM PENFILL [Suspect]
     Active Substance: INSULIN HUMAN
     Indication: TYPE 2 DIABETES MELLITUS
     Dosage: 60 IU, QD (40 IU AM AND 20 IU PM)
     Route: 058
  4. CID [Concomitant]
     Indication: NEUROPATHY PERIPHERAL
     Dosage: 1 DF QD (1 TAB./DAY)
     Route: 048

REACTIONS (1)
  - Breast cancer female [Recovered/Resolved]
